FAERS Safety Report 5762139-8 (Version None)
Quarter: 2008Q2

REPORT INFORMATION
  Report Type: 
  Country: None (occurrence: None)
  Receive Date: 20080604
  Receipt Date: 20080526
  Transmission Date: 20081010
  Serious: Yes (Other)
  Sender: FDA-Public Use
  Company Number: CAP08000184

PATIENT
  Age: 55 Year
  Sex: Male

DRUGS (2)
  1. ASACOL [Suspect]
     Dosage: 800 MG 4 TIMES DAILY, ORAL
     Route: 048
     Dates: start: 20070101
  2. PANTOLOC /01263201/ (PANTOPRAZOLE) [Concomitant]

REACTIONS (2)
  - COLOSTOMY [None]
  - MEDICATION RESIDUE [None]
